FAERS Safety Report 9437736 (Version 1)
Quarter: 2013Q3

REPORT INFORMATION
  Report Type: Spontaneous
  Country: IT (occurrence: IT)
  Receive Date: 20130802
  Receipt Date: 20130802
  Transmission Date: 20140515
  Serious: Yes (Other)
  Sender: FDA-Public Use
  Company Number: PHHY2013IT082581

PATIENT
  Sex: Female

DRUGS (3)
  1. VOLTAREN [Suspect]
     Indication: BACK PAIN
     Dosage: 1 DF, (TOTAL)
     Route: 030
     Dates: start: 20130305, end: 20130305
  2. MUSCORIL [Suspect]
     Indication: BACK PAIN
     Dosage: 1 DF,(TOTAL)
     Route: 030
     Dates: start: 20130305, end: 20130305
  3. CORTISONE [Concomitant]
     Indication: ASTHMA
     Dosage: UNK UKN, UNK

REACTIONS (2)
  - Bronchostenosis [Recovered/Resolved]
  - Dyspnoea [Recovered/Resolved]
